FAERS Safety Report 12244135 (Version 1)
Quarter: 2016Q2

REPORT INFORMATION
  Report Type: Spontaneous
  Country: DK (occurrence: DK)
  Receive Date: 20160406
  Receipt Date: 20160406
  Transmission Date: 20160815
  Serious: Yes (Hospitalization)
  Sender: FDA-Public Use
  Company Number: PHHY2016DK043116

PATIENT
  Age: 41 Year
  Sex: Female

DRUGS (2)
  1. BIOCLAVID [Suspect]
     Active Substance: AMOXICILLIN\CLAVULANIC ACID
     Indication: OTITIS MEDIA
     Route: 048
     Dates: start: 20160213, end: 20160219
  2. PANCILLIN [Suspect]
     Active Substance: PENICILLIN
     Indication: OTITIS MEDIA
     Route: 048
     Dates: start: 20160211, end: 20160212

REACTIONS (3)
  - Dyspnoea [Unknown]
  - Pharyngeal oedema [Unknown]
  - Urticaria [Not Recovered/Not Resolved]

NARRATIVE: CASE EVENT DATE: 20160215
